FAERS Safety Report 21009760 (Version 1)
Quarter: 2022Q2

REPORT INFORMATION
  Report Type: Spontaneous
  Country: US (occurrence: US)
  Receive Date: 20220627
  Receipt Date: 20220627
  Transmission Date: 20220721
  Serious: Yes (Life-Threatening, Hospitalization)
  Sender: FDA-Public Use
  Company Number: US-drreddys-LIT/USA/22/0151624

PATIENT
  Age: 33 Year
  Sex: Male

DRUGS (4)
  1. IBUPROFEN [Suspect]
     Active Substance: IBUPROFEN
     Indication: Chest pain
     Dosage: HIGH DOSES
  2. IBUPROFEN [Suspect]
     Active Substance: IBUPROFEN
     Indication: Rheumatic fever
     Dosage: HIGH-DOSE
  3. COLCHICINE [Suspect]
     Active Substance: COLCHICINE
     Indication: Chest pain
  4. COLCHICINE [Suspect]
     Active Substance: COLCHICINE
     Indication: Rheumatic fever

REACTIONS (2)
  - Drug ineffective [Unknown]
  - Condition aggravated [Unknown]
